FAERS Safety Report 4768026-6 (Version None)
Quarter: 2005Q3

REPORT INFORMATION
  Report Type: 
  Country: None (occurrence: None)
  Receive Date: 20050913
  Receipt Date: 20050825
  Transmission Date: 20060218
  Serious: Yes (Hospitalization)
  Sender: FDA-Public Use
  Company Number: 2005BI004540

PATIENT
  Age: 57 Year
  Sex: Female

DRUGS (17)
  1. AVONEX [Suspect]
     Indication: MULTIPLE SCLEROSIS
     Dosage: 30 UG;QW;IM
     Dates: start: 19981001
  2. SKELAXIN [Concomitant]
  3. NAPROSYN [Concomitant]
  4. CELEXA [Concomitant]
  5. DIOVAN HCT [Concomitant]
  6. ZOCOR [Concomitant]
  7. PROVIGIL [Concomitant]
  8. DETROL LA [Concomitant]
  9. NEURONTIN [Concomitant]
  10. ASPIRIN [Concomitant]
  11. MULTI-VITAMIN [Concomitant]
  12. PREVACID [Concomitant]
  13. APAP TAB [Concomitant]
  14. ADVAIR DISKUS 100/50 [Concomitant]
  15. DIOVAN [Concomitant]
  16. LOPRESSOR [Concomitant]
  17. IRON [Concomitant]

REACTIONS (31)
  - ANAEMIA OF CHRONIC DISEASE [None]
  - ARTHRALGIA [None]
  - ARTHRITIS INFECTIVE [None]
  - BETA HAEMOLYTIC STREPTOCOCCAL INFECTION [None]
  - BLOOD CHOLESTEROL INCREASED [None]
  - BLOOD IMMUNOGLOBULIN G ABNORMAL [None]
  - BLOOD UREA INCREASED [None]
  - CARBON DIOXIDE DECREASED [None]
  - CHEST PAIN [None]
  - CHILLS [None]
  - CONSTIPATION [None]
  - COOMBS DIRECT TEST POSITIVE [None]
  - DYSPHAGIA [None]
  - EOSINOPHIL COUNT INCREASED [None]
  - EOSINOPHIL PERCENTAGE INCREASED [None]
  - ERYTHEMA [None]
  - FIBRIN D DIMER INCREASED [None]
  - GASTROINTESTINAL INFLAMMATION [None]
  - HAEMORRHOIDS [None]
  - HEPATIC STEATOSIS [None]
  - JOINT SWELLING [None]
  - MEAN PLATELET VOLUME DECREASED [None]
  - MUSCLE SPASMS [None]
  - NEUROPATHY PERIPHERAL [None]
  - OEDEMA [None]
  - PAIN [None]
  - PLATELET COUNT INCREASED [None]
  - POLLAKIURIA [None]
  - RED BLOOD CELL SEDIMENTATION RATE INCREASED [None]
  - STAPHYLOCOCCAL INFECTION [None]
  - URINARY INCONTINENCE [None]
